FAERS Safety Report 9924865 (Version 1)
Quarter: 2014Q1

REPORT INFORMATION
  Report Type: Spontaneous
  Country: US (occurrence: US)
  Receive Date: 20140226
  Receipt Date: 20140226
  Transmission Date: 20141002
  Serious: No
  Sender: FDA-Public Use
  Company Number: US-BAYER-2014-029280

PATIENT
  Age: 14 Year
  Sex: Male
  Weight: 49.89 kg

DRUGS (2)
  1. ALEVE TABLET [Suspect]
     Indication: HEADACHE
     Dosage: UNK DF, UNK
     Route: 048
  2. ALEVE TABLET [Suspect]
     Indication: HEADACHE
     Dosage: 4 DF, UNK
     Route: 048
     Dates: start: 20140222, end: 20140222

REACTIONS (2)
  - Gastrooesophageal reflux disease [Recovered/Resolved]
  - Extra dose administered [None]
